FAERS Safety Report 20224734 (Version 2)
Quarter: 2022Q1

REPORT INFORMATION
  Report Type: Spontaneous
  Country: US (occurrence: US)
  Receive Date: 20211223
  Receipt Date: 20220113
  Transmission Date: 20220424
  Serious: Yes (Hospitalization)
  Sender: FDA-Public Use
  Company Number: US-TEVA-2021-US-1989699

PATIENT
  Age: 85 Year
  Sex: Female

DRUGS (1)
  1. CAPECITABINE [Suspect]
     Active Substance: CAPECITABINE
     Indication: Anal squamous cell carcinoma
     Route: 065

REACTIONS (4)
  - Gastric dilatation [Recovering/Resolving]
  - Impaired gastric emptying [Recovering/Resolving]
  - Oesophagitis [Recovering/Resolving]
  - Fluid retention [Recovering/Resolving]
